FAERS Safety Report 17684756 (Version 3)
Quarter: 2023Q1

REPORT INFORMATION
  Report Type: Spontaneous
  Country: US (occurrence: US)
  Receive Date: 20200420
  Receipt Date: 20230328
  Transmission Date: 20230418
  Serious: No
  Sender: FDA-Public Use
  Company Number: US-KYOWAKIRIN-2020BKK005937

PATIENT

DRUGS (1)
  1. CRYSVITA [Suspect]
     Active Substance: BUROSUMAB-TWZA
     Indication: Hereditary hypophosphataemic rickets
     Dosage: 80 MG, 1X/2 WEEKS
     Route: 065

REACTIONS (3)
  - Product dose omission issue [Recovered/Resolved]
  - Therapeutic drug monitoring analysis not performed [Unknown]
  - Overdose [Unknown]

NARRATIVE: CASE EVENT DATE: 20200301
